FAERS Safety Report 23251845 (Version 1)
Quarter: 2023Q4

REPORT INFORMATION
  Report Type: Spontaneous
  Country: US (occurrence: None)
  Receive Date: 20231130
  Receipt Date: 20231130
  Transmission Date: 20240110
  Serious: Yes (Hospitalization)
  Sender: FDA-Public Use
  Company Number: None

PATIENT
  Age: 6 Year
  Sex: Female

DRUGS (1)
  1. TADLIQ [Suspect]
     Active Substance: TADALAFIL
     Dosage: FREQUENCY : DAILY;?
     Dates: start: 20131113

REACTIONS (2)
  - Rhinovirus infection [None]
  - Respiratory syncytial virus infection [None]

NARRATIVE: CASE EVENT DATE: 20231001
